FAERS Safety Report 24407879 (Version 3)
Quarter: 2024Q4

REPORT INFORMATION
  Report Type: Report from Study
  Country: US (occurrence: US)
  Receive Date: 20241007
  Receipt Date: 20241220
  Transmission Date: 20250114
  Serious: Yes (Other)
  Sender: SUNOVION
  Company Number: US-SUMITOMO PHARMA SWITZERLAND GMBH-2024SPA000665

PATIENT

DRUGS (1)
  1. ORGOVYX [Suspect]
     Active Substance: RELUGOLIX
     Indication: Prostate cancer
     Dosage: 120 MG, QD
     Route: 048
     Dates: start: 20240710

REACTIONS (8)
  - Cardiac device reprogramming [Unknown]
  - Peripheral swelling [Unknown]
  - Bladder pain [Unknown]
  - Blood pressure increased [Unknown]
  - Incorrect dose administered [Unknown]
  - Dizziness [Recovering/Resolving]
  - Myalgia [Unknown]
  - Arthralgia [Unknown]
